FAERS Safety Report 6438193-7 (Version None)
Quarter: 2009Q4

REPORT INFORMATION
  Report Type: 
  Country: None (occurrence: None)
  Receive Date: 20091109
  Receipt Date: 20091028
  Transmission Date: 20100525
  Serious: Yes (Hospitalization)
  Sender: FDA-Public Use
  Company Number: 2009SP033111

PATIENT
  Age: 59 Year
  Sex: Female

DRUGS (14)
  1. REMERON [Suspect]
     Indication: DRUG USE FOR UNKNOWN INDICATION
     Dosage: 15 MG;QD;PO
     Route: 048
     Dates: start: 20060925, end: 20060929
  2. FLUCTINE (FLUOXETINE HYDROCHLORIDE) [Suspect]
     Indication: DRUG USE FOR UNKNOWN INDICATION
     Dosage: 30 MG;BID;PO
     Route: 048
     Dates: start: 20060424, end: 20090929
  3. VASERETIC [Suspect]
     Indication: DRUG USE FOR UNKNOWN INDICATION
     Dosage: 1 DF;QD;PO
     Route: 048
     Dates: start: 20060925, end: 20060929
  4. ARTHROTEC [Suspect]
     Indication: DRUG USE FOR UNKNOWN INDICATION
     Dosage: 1 DF;QD;PO
     Route: 048
     Dates: start: 20080219, end: 20090929
  5. CONCOR [Concomitant]
  6. CALCIMAGON-D3 [Concomitant]
  7. LORAZEPAM [Concomitant]
  8. PERENTEROL [Concomitant]
  9. CO-DAFALGAN [Concomitant]
  10. ORTHO GYNEST [Concomitant]
  11. LACRYCON [Concomitant]
  12. VOLTAREN OPHTA [Concomitant]
  13. SPERSAPOLYMYXIN [Concomitant]
  14. IMODIUM [Concomitant]

REACTIONS (11)
  - AMNESIA [None]
  - BLOOD OSMOLARITY DECREASED [None]
  - DIARRHOEA [None]
  - EUPHORIC MOOD [None]
  - FALL [None]
  - GAIT DISTURBANCE [None]
  - HYPONATRAEMIA [None]
  - INAPPROPRIATE ANTIDIURETIC HORMONE SECRETION [None]
  - NAUSEA [None]
  - SPEECH DISORDER [None]
  - VOMITING [None]
